FAERS Safety Report 9589036 (Version 1)
Quarter: 2013Q4

REPORT INFORMATION
  Report Type: Spontaneous
  Country: US (occurrence: US)
  Receive Date: 20131003
  Receipt Date: 20131003
  Transmission Date: 20140711
  Serious: No
  Sender: FDA-Public Use
  Company Number: US-AMGEN-USASP2012068236

PATIENT
  Age: 47 Year
  Sex: Male
  Weight: 104.31 kg

DRUGS (5)
  1. ENBREL [Suspect]
     Indication: PSORIATIC ARTHROPATHY
     Dosage: 50 MG, QWK
     Route: 058
  2. VITAMIN D                          /00107901/ [Concomitant]
     Dosage: 1000 UNIT, UNK
  3. VITAMIN B12                        /00056201/ [Concomitant]
     Dosage: 2000 MUG, UNK
  4. TRAZODONE                          /00447702/ [Concomitant]
     Dosage: 50 MG, UNK
  5. VITAMIN C                          /00008001/ [Concomitant]
     Dosage: 500 MG, UNK

REACTIONS (2)
  - Injection site pain [Unknown]
  - Injection site reaction [Unknown]
